FAERS Safety Report 6332727-9 (Version None)
Quarter: 2009Q3

REPORT INFORMATION
  Report Type: 
  Country: None (occurrence: None)
  Receive Date: 20090828
  Receipt Date: 20090820
  Transmission Date: 20100115
  Serious: Yes (Hospitalization, Other)
  Sender: FDA-Public Use
  Company Number: GB-TEVA-207032ISR

PATIENT
  Age: 54 Year
  Sex: Female

DRUGS (2)
  1. FLUDARABINE PHOSPHATE [Suspect]
     Indication: ACUTE MYELOID LEUKAEMIA
  2. ALEMTUZUMAB [Suspect]

REACTIONS (9)
  - BONE MARROW FAILURE [None]
  - CARDIAC FAILURE CONGESTIVE [None]
  - CONGESTIVE CARDIOMYOPATHY [None]
  - EPSTEIN-BARR VIRUS INFECTION [None]
  - GASTROENTERITIS ADENOVIRUS [None]
  - OROPHARYNGEAL PAIN [None]
  - PARVOVIRUS INFECTION [None]
  - RHINITIS [None]
  - VIRAL MYOCARDITIS [None]
